FAERS Safety Report 24246567 (Version 1)
Quarter: 2024Q3

REPORT INFORMATION
  Report Type: Spontaneous
  Country: MY (occurrence: MY)
  Receive Date: 20240825
  Receipt Date: 20240825
  Transmission Date: 20241017
  Serious: Yes (Hospitalization)
  Sender: JOHNSON AND JOHNSON
  Company Number: MY-JNJFOC-20240860306

PATIENT

DRUGS (3)
  1. INVEGA TRINZA [Suspect]
     Active Substance: PALIPERIDONE PALMITATE
     Indication: Product used for unknown indication
     Route: 030
     Dates: start: 2024
  2. INVEGA TRINZA [Suspect]
     Active Substance: PALIPERIDONE PALMITATE
  3. INVEGA TRINZA [Suspect]
     Active Substance: PALIPERIDONE PALMITATE

REACTIONS (1)
  - Hallucination [Unknown]

NARRATIVE: CASE EVENT DATE: 20240801
